FAERS Safety Report 17347312 (Version 1)
Quarter: 2020Q1

REPORT INFORMATION
  Report Type: Report from Study
  Country: US (occurrence: US)
  Receive Date: 20200129
  Receipt Date: 20200129
  Transmission Date: 20200409
  Serious: No
  Sender: FDA-Public Use
  Company Number: US-EXELIXIS-CABO-19021738

PATIENT
  Age: 56 Year
  Sex: Male

DRUGS (1)
  1. CABOMETYX [Suspect]
     Active Substance: CABOZANTINIB S-MALATE
     Indication: RENAL CANCER
     Dosage: 40 MG, QD
     Route: 048
     Dates: start: 20190608

REACTIONS (10)
  - Skin burning sensation [Unknown]
  - Lethargy [Unknown]
  - Nausea [Unknown]
  - Fatigue [Unknown]
  - Asthenia [Unknown]
  - Tongue blistering [Unknown]
  - Amnesia [Unknown]
  - Muscle spasms [Unknown]
  - Dizziness [Unknown]
  - Skin ulcer [Unknown]

NARRATIVE: CASE EVENT DATE: 201906
